FAERS Safety Report 26106023 (Version 1)
Quarter: 2025Q4

REPORT INFORMATION
  Report Type: Spontaneous
  Country: US (occurrence: US)
  Receive Date: 20251201
  Receipt Date: 20251201
  Transmission Date: 20260118
  Serious: Yes (Hospitalization, Other)
  Sender: DR REDDYS
  Company Number: US-DRL-USA-USA/2025/11/018017

PATIENT
  Age: 41 Year
  Sex: Male

DRUGS (4)
  1. LIOTHYRONINE [Suspect]
     Active Substance: LIOTHYRONINE
     Indication: Weight control
     Dosage: 50 MCG ON DAYS 1-3
     Route: 048
  2. LIOTHYRONINE [Suspect]
     Active Substance: LIOTHYRONINE
     Dosage: 50 MCG ON DAYS 4
  3. LEVOTHYROXINE [Suspect]
     Active Substance: LEVOTHYROXINE
     Indication: Weight control
     Dosage: 100 MCG ON DAY 4,
  4. LEVOTHYROXINE [Suspect]
     Active Substance: LEVOTHYROXINE
     Dosage: 50 MCG ON DAYS 1-3
     Route: 048

REACTIONS (2)
  - Hyperthyroidism [Recovering/Resolving]
  - Product use in unapproved indication [Unknown]
